FAERS Safety Report 8583189-2 (Version None)
Quarter: 2012Q3

REPORT INFORMATION
  Report Type: 
  Country: None (occurrence: None)
  Receive Date: 20120809
  Receipt Date: 20120802
  Transmission Date: 20120928
  Serious: Yes (Hospitalization)
  Sender: FDA-Public Use
  Company Number: SV-B.I. PHARMACEUTICALS,INC./RIDGEFIELD-2012-MX-00222MX

PATIENT
  Sex: Female
  Weight: 70 kg

DRUGS (1)
  1. PRADAXA [Suspect]
     Indication: DEEP VEIN THROMBOSIS
     Dosage: 110 MG
     Route: 048
     Dates: start: 20120709, end: 20120717

REACTIONS (2)
  - ROAD TRAFFIC ACCIDENT [None]
  - HAEMORRHAGE [None]
